FAERS Safety Report 21945377 (Version 7)
Quarter: 2025Q2

REPORT INFORMATION
  Report Type: Spontaneous
  Country: US (occurrence: US)
  Receive Date: 20230202
  Receipt Date: 20250425
  Transmission Date: 20250717
  Serious: No
  Sender: PFIZER
  Company Number: US-PFIZER INC-PV202300019056

PATIENT
  Age: 90 Year

DRUGS (1)
  1. PREMARIN [Suspect]
     Active Substance: ESTROGENS, CONJUGATED
     Indication: Fatigue
     Dosage: 0.625 MG, DAILY (DAILY X 1 WEEK THEN 2 X A WEEK THEREAFTER)
     Route: 067

REACTIONS (3)
  - Limb injury [Unknown]
  - Confusional state [Unknown]
  - Off label use [Unknown]
